FAERS Safety Report 16248146 (Version 6)
Quarter: 2024Q3

REPORT INFORMATION
  Report Type: Spontaneous
  Country: PL (occurrence: PL)
  Receive Date: 20190428
  Receipt Date: 20240912
  Transmission Date: 20241016
  Serious: Yes (Life-Threatening, Hospitalization, Other)
  Sender: CELLTRION
  Company Number: PL-CELLTRION INC.-2019PL020660

PATIENT

DRUGS (54)
  1. RITUXIMAB [Suspect]
     Active Substance: RITUXIMAB
     Indication: Diffuse large B-cell lymphoma
     Dosage: 375 MG/M2
     Route: 065
     Dates: start: 2017
  2. RITUXIMAB [Suspect]
     Active Substance: RITUXIMAB
     Dosage: 1/1 CYCLE (8 CYCLES, RCHOP THERAPY BETWEEN JANUARY AND JUNE 2013)
     Route: 065
  3. RITUXIMAB [Suspect]
     Active Substance: RITUXIMAB
     Dosage: 375 MG/M2, (IMMUNOCHEMOTHERAPY); 8 CYCLES, RCHOP THERAPY BETWEEN JANUARY AND JUNE 2013
     Route: 065
  4. RITUXIMAB [Suspect]
     Active Substance: RITUXIMAB
     Dosage: DOSE REDUCED BY 50%
     Dates: start: 2017
  5. CYCLOPHOSPHAMIDE [Suspect]
     Active Substance: CYCLOPHOSPHAMIDE
     Indication: Diffuse large B-cell lymphoma
     Dosage: 750 MG/M2
     Route: 065
     Dates: start: 2017
  6. CYCLOPHOSPHAMIDE [Suspect]
     Active Substance: CYCLOPHOSPHAMIDE
     Dosage: DOSE REDUCED BY 50%
     Dates: start: 2017
  7. CYTARABINE [Suspect]
     Active Substance: CYTARABINE
     Indication: Diffuse large B-cell lymphoma
     Dosage: 1/1 CYCLE (3 CYCLES OF ICE AS MOBILIZATION CHEMOTHERAPY)
     Route: 065
     Dates: start: 201402
  8. CYTARABINE [Suspect]
     Active Substance: CYTARABINE
     Dosage: UNK UNK, CYCLIC
     Route: 065
     Dates: start: 201402
  9. CYTARABINE [Suspect]
     Active Substance: CYTARABINE
     Dosage: UNK
     Route: 065
     Dates: start: 201402
  10. CYTARABINE [Suspect]
     Active Substance: CYTARABINE
     Indication: Diffuse large B-cell lymphoma stage IV
     Dosage: PER 1 CYCLE (O-IVAC IMMUNOCHEMOTHERAPY)
     Route: 065
  11. CYTARABINE [Suspect]
     Active Substance: CYTARABINE
     Dosage: UNK
     Route: 065
  12. DEXAMETHASONE [Suspect]
     Active Substance: DEXAMETHASONE
     Indication: Diffuse large B-cell lymphoma
     Dosage: 1/1 CYCLE (3 CYCLES OF ICE AS MOBILIZATION CHEMOTHERAPY)
     Route: 065
     Dates: start: 201402
  13. DEXAMETHASONE [Suspect]
     Active Substance: DEXAMETHASONE
     Dosage: UNK
     Route: 065
     Dates: start: 201402
  14. DOXORUBICIN [Suspect]
     Active Substance: DOXORUBICIN
     Indication: Diffuse large B-cell lymphoma
     Dosage: 1/1 CYCLE (8 CYCLES, RCHOP THERAPY); IMMUNOCHEMOTHERAPY-100 MG/DAY
     Route: 065
  15. CYCLOPHOSPHAMIDE [Suspect]
     Active Substance: CYCLOPHOSPHAMIDE
     Indication: Diffuse large B-cell lymphoma
     Dosage: 750 MG/M2 PER 1 CYCLE (IMMUNOCHEMOTHERAPY); 8 CYCLES, RCHOP THERAPY BETWEEN JANUARY AND JUNE 2013
     Route: 065
  16. CYCLOPHOSPHAMIDE [Suspect]
     Active Substance: CYCLOPHOSPHAMIDE
     Dosage: 1/1 CYCLE (8 CYCLES, RCHOP THERAPY BETWEEN JANUARY AND JUNE 2013)
     Route: 065
  17. ETOPOSIDE [Suspect]
     Active Substance: ETOPOSIDE
     Indication: Diffuse large B-cell lymphoma stage IV
     Dosage: PER 1 CYCLE (O-IVAC IMMUNOCHEMOTHERAPY)
     Route: 065
  18. ETOPOSIDE [Suspect]
     Active Substance: ETOPOSIDE
     Dosage: UNK
     Route: 065
  19. IFOSFAMIDE [Suspect]
     Active Substance: IFOSFAMIDE
     Indication: Diffuse large B-cell lymphoma
     Dosage: PER 1 CYCLE
     Route: 065
  20. IFOSFAMIDE [Suspect]
     Active Substance: IFOSFAMIDE
     Dosage: UNK
     Route: 065
  21. IFOSFAMIDE [Suspect]
     Active Substance: IFOSFAMIDE
     Indication: Diffuse large B-cell lymphoma stage IV
     Dosage: UNK
     Route: 065
  22. DOXORUBICIN HYDROCHLORIDE [Suspect]
     Active Substance: DOXORUBICIN HYDROCHLORIDE
     Indication: Diffuse large B-cell lymphoma
     Dosage: UNK
  23. METHOTREXATE [Suspect]
     Active Substance: METHOTREXATE
     Indication: Diffuse large B-cell lymphoma stage IV
     Dosage: PER 1 CYCLE (O-IVAC IMMUNOCHEMOTHERAPY); 8 CYCLES, RCHOP THERAPY BETWEEN JANUARY AND JUNE 2013
     Route: 065
  24. METHOTREXATE [Suspect]
     Active Substance: METHOTREXATE
     Indication: Prophylaxis against graft versus host disease
     Dosage: 8 CYCLES, RCHOP THERAPY BETWEEN JANUARY AND JUNE 2013
     Route: 065
  25. DOXORUBICIN [Suspect]
     Active Substance: DOXORUBICIN
     Indication: Diffuse large B-cell lymphoma
     Dosage: IMMUNOCHEMOTHERAPY-100 MG/DAY
     Route: 065
  26. DOXORUBICIN [Suspect]
     Active Substance: DOXORUBICIN
     Dosage: 100 MG, QD
     Dates: start: 2017
  27. DOXORUBICIN [Suspect]
     Active Substance: DOXORUBICIN
     Dosage: 50% DOSE REDUCED
     Dates: start: 2017
  28. OFATUMUMAB [Suspect]
     Active Substance: OFATUMUMAB
     Indication: Diffuse large B-cell lymphoma stage IV
     Dosage: O-IVAC IMMUNOCHEMOTHERAPY
     Route: 065
  29. OFATUMUMAB [Suspect]
     Active Substance: OFATUMUMAB
     Dosage: ADDITIONAL INFORMATION ON DRUG (FREE TEXT): {CNAPPROVALNUMBER_NGX}NOT APPLICABLE{/CNAPPROVALNUMBER_N
     Route: 065
  30. PLATINOL [Suspect]
     Active Substance: CISPLATIN
     Indication: Diffuse large B-cell lymphoma
     Dosage: 1/1 CYCLE (3 CYCLES OF ICE AS MOBILIZATION CHEMOTHERAPY)
     Route: 065
     Dates: start: 201402
  31. PLATINOL [Suspect]
     Active Substance: CISPLATIN
     Dosage: UNK
     Route: 065
     Dates: start: 201402
  32. PREDNISOLONE [Suspect]
     Active Substance: PREDNISOLONE
     Indication: Diffuse large B-cell lymphoma
     Dosage: 1/CYCLE (8 CYCLES, RCHOP THERAPY BETWEEN JANUARY AND JUNE 2013)
     Route: 065
  33. PREDNISONE [Suspect]
     Active Substance: PREDNISONE
     Indication: Diffuse large B-cell lymphoma
     Dosage: 100 MG, QD
     Route: 065
     Dates: start: 2017
  34. PREDNISONE [Suspect]
     Active Substance: PREDNISONE
     Dosage: UNK
  35. PREDNISONE [Suspect]
     Active Substance: PREDNISONE
     Dosage: 100MG/DAY
     Route: 065
  36. PREDNISONE [Suspect]
     Active Substance: PREDNISONE
     Dosage: 50% DOSE REDUCED
     Dates: start: 2017
  37. VINBLASTINE [Suspect]
     Active Substance: VINBLASTINE
     Indication: Diffuse large B-cell lymphoma
     Dosage: 10 MG, QD
     Route: 065
     Dates: start: 2017
  38. VINBLASTINE [Suspect]
     Active Substance: VINBLASTINE
     Dosage: UNK
  39. VINBLASTINE [Suspect]
     Active Substance: VINBLASTINE
     Dosage: IMMUNOCHEMOTHERAPY-10MG/DAY
     Route: 065
  40. VINBLASTINE [Suspect]
     Active Substance: VINBLASTINE
     Dosage: 50% DOSE REDUCED
     Dates: start: 2017
  41. VINBLASTINE SULFATE [Suspect]
     Active Substance: VINBLASTINE SULFATE
     Indication: Diffuse large B-cell lymphoma
     Dosage: IMMUNOCHEMOTHERAPY-10MG/DAY
     Route: 065
  42. VINCRISTINE SULFATE [Suspect]
     Active Substance: VINCRISTINE SULFATE
     Indication: Diffuse large B-cell lymphoma
     Dosage: 1/1 CYCLE (8 CYCLES, RCHOP THERAPY BETWEEN JANUARY AND JUNE 2013)
     Route: 065
  43. VINCRISTINE SULFATE [Suspect]
     Active Substance: VINCRISTINE SULFATE
     Indication: Diffuse large B-cell lymphoma
     Dosage: 8 CYCLES, RCHOP THERAPY BETWEEN JANUARY AND JUNE 2013
     Route: 065
  44. BENDAMUSTINE [Concomitant]
     Active Substance: BENDAMUSTINE
     Indication: Diffuse large B-cell lymphoma
     Dosage: CONDITIONING REGIMEN
     Route: 065
  45. BENDAMUSTINE [Concomitant]
     Active Substance: BENDAMUSTINE
     Indication: Allogenic stem cell transplantation
     Dosage: 200 MG/CYCLE (BETWEEN JULY AND OCTOBER 2016, FOUR CYCLES ON D1 AND D2)
     Route: 065
  46. CARBOPLATIN [Concomitant]
     Active Substance: CARBOPLATIN
     Indication: Diffuse large B-cell lymphoma
     Dosage: UNK
     Route: 065
  47. CYCLOSPORINE [Concomitant]
     Active Substance: CYCLOSPORINE
     Indication: Diffuse large B-cell lymphoma
     Dosage: UNK
     Route: 065
  48. CYCLOSPORINE [Concomitant]
     Active Substance: CYCLOSPORINE
     Indication: Prophylaxis against graft versus host disease
     Dosage: UNK
  49. GRANULOCYTE COLONY-STIMULATING FACTOR NOS [Concomitant]
     Active Substance: GRANULOCYTE COLONY-STIMULATING FACTOR NOS
     Indication: Prophylaxis
     Dosage: UNK
     Dates: start: 2017
  50. MELPHALAN [Concomitant]
     Active Substance: MELPHALAN
     Indication: Diffuse large B-cell lymphoma
     Dosage: CONDITIONING REGIMEN
     Route: 065
  51. MELPHALAN [Concomitant]
     Active Substance: MELPHALAN
     Indication: Allogenic stem cell transplantation
     Dosage: UNK
     Route: 065
  52. MYCOPHENOLATE MOFETIL [Concomitant]
     Active Substance: MYCOPHENOLATE MOFETIL
     Indication: Acute motor-sensory axonal neuropathy
     Dosage: UNK
     Route: 042
  53. PIXANTRONE [Concomitant]
     Active Substance: PIXANTRONE
     Indication: Diffuse large B-cell lymphoma
     Dosage: UNK
     Route: 065
  54. PIXANTRONUM [Concomitant]
     Indication: Diffuse large B-cell lymphoma
     Dosage: UNK
     Route: 065

REACTIONS (11)
  - Disease progression [Unknown]
  - Diffuse large B-cell lymphoma [Unknown]
  - Myelosuppression [Unknown]
  - Anaphylactic shock [Unknown]
  - Septic shock [Unknown]
  - Malignant neoplasm progression [Unknown]
  - Febrile neutropenia [Unknown]
  - Pneumonia [Unknown]
  - Infection [Unknown]
  - Therapy partial responder [Unknown]
  - Product use in unapproved indication [Unknown]

NARRATIVE: CASE EVENT DATE: 20170101
